FAERS Safety Report 17373147 (Version 2)
Quarter: 2020Q2

REPORT INFORMATION
  Report Type: Spontaneous
  Country: DE (occurrence: DE)
  Receive Date: 20200205
  Receipt Date: 20200422
  Transmission Date: 20200713
  Serious: Yes (Hospitalization, Other)
  Sender: FDA-Public Use
  Company Number: DE-GILEAD-2020-0449738

PATIENT
  Age: 33 Year
  Sex: Male
  Weight: 69 kg

DRUGS (3)
  1. PANTOZOL [Concomitant]
     Active Substance: PANTOPRAZOLE SODIUM
     Dosage: UNK
  2. ODEFSEY [Suspect]
     Active Substance: EMTRICITABINE\RILPIVIRINE HYDROCHLORIDE\TENOFOVIR ALAFENAMIDE FUMARATE
     Indication: HIV INFECTION
     Dosage: UNK
     Route: 065
  3. PANTOZOL [Concomitant]
     Active Substance: PANTOPRAZOLE SODIUM
     Dosage: UNK

REACTIONS (5)
  - Off label use [Unknown]
  - Drug hypersensitivity [Recovering/Resolving]
  - Post procedural infection [Unknown]
  - Complicated fracture [Unknown]
  - Incision site rash [Recovering/Resolving]

NARRATIVE: CASE EVENT DATE: 201912
